FAERS Safety Report 7712541-X (Version None)
Quarter: 2011Q3

REPORT INFORMATION
  Report Type: 
  Country: None (occurrence: None)
  Receive Date: 20110822
  Receipt Date: 20110816
  Transmission Date: 20111222
  Serious: Yes (Life-Threatening, Hospitalization)
  Sender: FDA-Public Use
  Company Number: 2011SP038478

PATIENT
  Sex: Female

DRUGS (1)
  1. IMPLANON [Suspect]
     Indication: CONTRACEPTION
     Dates: start: 20110201

REACTIONS (6)
  - COMA [None]
  - ACCIDENT [None]
  - DRUG LEVEL FLUCTUATING [None]
  - DEVICE INTERACTION [None]
  - EPILEPSY [None]
  - HEAD INJURY [None]
